FAERS Safety Report 4574688-9 (Version None)
Quarter: 2005Q1

REPORT INFORMATION
  Report Type: 
  Country: None (occurrence: None)
  Receive Date: 20050208
  Receipt Date: 20040701
  Transmission Date: 20050727
  Serious: No
  Sender: FDA-Public Use
  Company Number: US-GLAXOSMITHKLINE-A0516776A

PATIENT
  Age: 64 Year
  Sex: Female

DRUGS (2)
  1. PAXIL [Suspect]
     Dosage: 30MG PER DAY
     Route: 048
     Dates: start: 19990101
  2. AUGMENTIN [Concomitant]

REACTIONS (2)
  - PERSONALITY CHANGE [None]
  - WEIGHT INCREASED [None]
